FAERS Safety Report 6456861-8 (Version None)
Quarter: 2009Q4

REPORT INFORMATION
  Report Type: 
  Country: None (occurrence: None)
  Receive Date: 20091125
  Receipt Date: 20091113
  Transmission Date: 20100525
  Serious: Yes (Death)
  Sender: FDA-Public Use
  Company Number: DK-PFIZER INC-2009297193

PATIENT
  Age: 43 Year
  Sex: Female

DRUGS (4)
  1. ZAVEDOS [Suspect]
     Indication: ACUTE MYELOID LEUKAEMIA
     Dosage: UNK
     Dates: start: 20060601, end: 20060601
  2. ZAVEDOS [Interacting]
     Dosage: UNK
     Dates: start: 20060705, end: 20060705
  3. FLUDARA [Interacting]
     Indication: ACUTE MYELOID LEUKAEMIA
     Dosage: UNK
     Dates: start: 20060601, end: 20060601
  4. FLUDARA [Interacting]
     Dosage: UNK
     Dates: start: 20060705, end: 20060705

REACTIONS (3)
  - BRONCHOPULMONARY ASPERGILLOSIS [None]
  - DRUG INTERACTION [None]
  - PULMONARY HAEMORRHAGE [None]
